FAERS Safety Report 24637509 (Version 1)
Quarter: 2024Q4

REPORT INFORMATION
  Report Type: Spontaneous
  Country: US (occurrence: US)
  Receive Date: 20241119
  Receipt Date: 20241119
  Transmission Date: 20250115
  Serious: No
  Sender: TEVA
  Company Number: US-TEVA-VS-3261696

PATIENT
  Age: 70 Year
  Sex: Female

DRUGS (1)
  1. COPAXONE [Suspect]
     Active Substance: GLATIRAMER ACETATE
     Indication: Product used for unknown indication
     Route: 065

REACTIONS (5)
  - Chills [Unknown]
  - Chills [Unknown]
  - Drug intolerance [Unknown]
  - Tremor [Unknown]
  - Fatigue [Unknown]
